FAERS Safety Report 18275985 (Version 5)
Quarter: 2020Q4

REPORT INFORMATION
  Report Type: Report from Study
  Country: BR (occurrence: BR)
  Receive Date: 20200916
  Receipt Date: 20201001
  Transmission Date: 20210113
  Serious: Yes (Death)
  Sender: FDA-Public Use
  Company Number: BR-ROCHE-2672737

PATIENT
  Age: 77 Year
  Sex: Female
  Weight: 69 kg

DRUGS (16)
  1. HEPARIN [Concomitant]
     Active Substance: HEPARIN SODIUM
     Indication: COVID-19 PNEUMONIA
     Dates: start: 20200823
  2. REMDESIVIR. [Suspect]
     Active Substance: REMDESIVIR
     Indication: COVID-19 PNEUMONIA
     Dosage: LOADING DOSE?ON 05/SEP/2020, AT 11:20, MOST RECENT DOSE OF INTRAVENOUS REMDESIVIR (250 ML) WAS ADMIN
     Route: 042
     Dates: start: 20200828
  3. POLIMIXINA B [Concomitant]
     Active Substance: POLYMYXIN B
     Indication: PULMONARY SEPSIS
     Dosage: 2 AMPULE
     Dates: start: 20200807, end: 20200808
  4. ROCURONIUM [Concomitant]
     Active Substance: ROCURONIUM BROMIDE
     Indication: SEDATION
     Dates: start: 20200826, end: 20200827
  5. FUROSEMIDA [Concomitant]
     Active Substance: FUROSEMIDE
     Dates: start: 20200826
  6. NOREPINEFRINA [Concomitant]
     Indication: VASOCONSTRICTION
     Dates: start: 20200825
  7. TOCILIZUMAB. [Suspect]
     Active Substance: TOCILIZUMAB
     Indication: COVID-19 PNEUMONIA
     Dosage: LOADING DOSE
     Route: 042
     Dates: start: 20200828
  8. CEFTRIAXONE. [Concomitant]
     Active Substance: CEFTRIAXONE
     Indication: COVID-19 PNEUMONIA
     Dates: start: 20200823, end: 20200829
  9. DEXAMETHASONE. [Concomitant]
     Active Substance: DEXAMETHASONE
     Indication: COVID-19 PNEUMONIA
     Dates: start: 20200823
  10. KETAMINE [Concomitant]
     Active Substance: KETAMINE
     Indication: SEDATION
     Dates: start: 20200826
  11. MEROPENEM. [Concomitant]
     Active Substance: MEROPENEM
     Indication: PULMONARY SEPSIS
     Dates: start: 20200806, end: 20200808
  12. AMIKACIN. [Concomitant]
     Active Substance: AMIKACIN
     Indication: PULMONARY SEPSIS
     Dates: start: 20200808
  13. PROPOFOL. [Concomitant]
     Active Substance: PROPOFOL
     Indication: SEDATION
     Dates: start: 20200825
  14. OMEPRAZOLE. [Concomitant]
     Active Substance: OMEPRAZOLE
     Dates: start: 20200823
  15. LACTULOSE. [Concomitant]
     Active Substance: LACTULOSE
     Dates: start: 20200827
  16. MIDAZOLAM. [Concomitant]
     Active Substance: MIDAZOLAM
     Indication: SEDATION
     Dates: start: 20200829

REACTIONS (2)
  - Pulmonary sepsis [Not Recovered/Not Resolved]
  - Sepsis [Fatal]

NARRATIVE: CASE EVENT DATE: 20200903
